FAERS Safety Report 15986209 (Version 1)
Quarter: 2019Q1

REPORT INFORMATION
  Report Type: Spontaneous
  Country: US (occurrence: US)
  Receive Date: 20190220
  Receipt Date: 20190220
  Transmission Date: 20190418
  Serious: Yes (Other)
  Sender: FDA-Public Use
  Company Number: PHEH2019US007250

PATIENT
  Sex: Male

DRUGS (2)
  1. AFINITOR [Suspect]
     Active Substance: EVEROLIMUS
     Indication: THYROID CANCER
     Dosage: UNK UNK, QD
     Route: 048
  2. LENVATINIB [Suspect]
     Active Substance: LENVATINIB
     Indication: THYROID CANCER
     Dosage: 10 MG, QD
     Route: 048

REACTIONS (10)
  - Fatigue [Unknown]
  - Product use in unapproved indication [Unknown]
  - Toxicity to various agents [Unknown]
  - Eating disorder [Unknown]
  - Anaemia [Unknown]
  - Protein total decreased [Unknown]
  - Colitis [Unknown]
  - Weight decreased [Unknown]
  - Headache [Unknown]
  - Haemoglobin decreased [Unknown]
